FAERS Safety Report 5429302-7 (Version None)
Quarter: 2007Q3

REPORT INFORMATION
  Report Type: 
  Country: None (occurrence: None)
  Receive Date: 20070827
  Receipt Date: 20070827
  Transmission Date: 20080115
  Serious: Yes (Death)
  Sender: FDA-Public Use
  Company Number: None

PATIENT
  Age: 50 Year
  Sex: Female
  Weight: 45 kg

DRUGS (13)
  1. PROPRANOLOL [Suspect]
     Indication: CACHEXIA
     Dosage: 70MG 40MGBREAKFAST 20MGLUNCH 10MGEVENING ORAL
     Route: 048
     Dates: start: 20070612, end: 20070617
  2. ETODOLAC [Suspect]
     Indication: CACHEXIA
     Dosage: 400MG 200MG BREAKFAST 200MG EVENING ORAL
     Route: 048
     Dates: start: 20070612, end: 20070617
  3. PANTOPRAZOLE SODIUM [Concomitant]
  4. AMLODEPIN [Concomitant]
  5. CLOTRIMAZOLE [Concomitant]
  6. CAP MULTIVITAMINS [Concomitant]
  7. POVIDINE IODINE MOUTH WASH [Concomitant]
  8. CLOTRIMAZOLE [Concomitant]
  9. LORAZEPAM [Concomitant]
  10. CARBAMAZEPINE [Concomitant]
  11. AMITRYPTILINE TAB [Concomitant]
  12. CALCIM CARNONATE + VIT D3 TAB [Concomitant]
  13. FLUTICASONE + SALMETEROL INHALER [Concomitant]

REACTIONS (5)
  - CARDIO-RESPIRATORY ARREST [None]
  - HAEMOGLOBIN DECREASED [None]
  - MALIGNANT NEOPLASM PROGRESSION [None]
  - NON-SMALL CELL LUNG CANCER [None]
  - PLATELET COUNT DECREASED [None]
